FAERS Safety Report 11888791 (Version 1)
Quarter: 2016Q1

REPORT INFORMATION
  Report Type: Spontaneous
  Country: US (occurrence: None)
  Receive Date: 20160104
  Receipt Date: 20160104
  Transmission Date: 20160526
  Serious: Yes (Other)
  Sender: FDA-Public Use
  Company Number: None

PATIENT
  Age: 48 Year
  Sex: Female
  Weight: 90.72 kg

DRUGS (4)
  1. HYDROCODONE BITARTRATE. [Suspect]
     Active Substance: HYDROCODONE BITARTRATE
     Indication: INTERVERTEBRAL DISC PROTRUSION
     Dosage: TAKEN BY MOUTH
     Dates: start: 20151119, end: 20151124
  2. FLEXERIL [Concomitant]
     Active Substance: CYCLOBENZAPRINE HYDROCHLORIDE
  3. HYDROCODONE BITARTRATE. [Suspect]
     Active Substance: HYDROCODONE BITARTRATE
     Indication: INTERVERTEBRAL DISC DEGENERATION
     Dosage: TAKEN BY MOUTH
     Dates: start: 20151119, end: 20151124
  4. CYMBALTA [Concomitant]
     Active Substance: DULOXETINE HYDROCHLORIDE

REACTIONS (3)
  - Blood urine present [None]
  - Urinary retention [None]
  - Burning sensation [None]

NARRATIVE: CASE EVENT DATE: 20160101
